FAERS Safety Report 8525758-1 (Version None)
Quarter: 2012Q3

REPORT INFORMATION
  Report Type: 
  Country: None (occurrence: None)
  Receive Date: 20120720
  Receipt Date: 20120710
  Transmission Date: 20120928
  Serious: Yes (Hospitalization)
  Sender: FDA-Public Use
  Company Number: US-009507513-1203USA00778

PATIENT

DRUGS (6)
  1. OS-CAL (CALCIUM CARBONATE) [Concomitant]
     Dosage: UNK UNK, BID
     Route: 048
     Dates: start: 20020101
  2. VITAMIN D (UNSPECIFIED) [Concomitant]
     Indication: OSTEOPENIA
  3. ALENDRONATE SODIUM [Suspect]
     Dosage: 70 MG, UNK
     Dates: start: 20080728
  4. CALCIUM (UNSPECIFIED) [Concomitant]
     Indication: OSTEOPENIA
  5. FOSAMAX [Suspect]
     Indication: MENOPAUSE
     Dosage: 35 MG, UNK
     Route: 048
     Dates: start: 20040417, end: 20040919
  6. FOSAMAX [Suspect]
     Indication: OSTEOPENIA
     Dosage: 70 MG, UNK
     Route: 048
     Dates: start: 20040106, end: 20090101

REACTIONS (6)
  - DEPRESSION [None]
  - FEMUR FRACTURE [None]
  - TOOTH DISORDER [None]
  - VITAMIN D DEFICIENCY [None]
  - HORMONE LEVEL ABNORMAL [None]
  - CALCIUM DEFICIENCY [None]
